FAERS Safety Report 19072564 (Version 1)
Quarter: 2021Q1

REPORT INFORMATION
  Report Type: Spontaneous
  Country: US (occurrence: US)
  Receive Date: 20210329
  Receipt Date: 20210329
  Transmission Date: 20210420
  Serious: Yes (Hospitalization)
  Sender: FDA-Public Use
  Company Number: None

PATIENT
  Age: 73 Year
  Sex: Female

DRUGS (3)
  1. VERZENIO [Suspect]
     Active Substance: ABEMACICLIB
     Route: 048
     Dates: start: 20210219
  2. AMIODARONE [Concomitant]
     Active Substance: AMIODARONE
  3. ANASROZOLE CALCIUM [Concomitant]

REACTIONS (3)
  - Therapy change [None]
  - Diarrhoea [None]
  - Heart rate increased [None]

NARRATIVE: CASE EVENT DATE: 20210302
